FAERS Safety Report 12257396 (Version 1)
Quarter: 2016Q2

REPORT INFORMATION
  Report Type: Report from Study
  Country: BR (occurrence: BR)
  Receive Date: 20160412
  Receipt Date: 20160412
  Transmission Date: 20160815
  Serious: Yes (Hospitalization)
  Sender: FDA-Public Use
  Company Number: PHHY2016BR048445

PATIENT
  Sex: Female
  Weight: 36 kg

DRUGS (1)
  1. EXJADE [Suspect]
     Active Substance: DEFERASIROX
     Indication: SICKLE CELL ANAEMIA
     Dosage: 30 MG/KG, (2 TABLETS OF 500 MG) QD
     Route: 048
     Dates: start: 2015

REACTIONS (2)
  - Pneumonia [Unknown]
  - Chest pain [Unknown]
